FAERS Safety Report 24221762 (Version 1)
Quarter: 2024Q3

REPORT INFORMATION
  Report Type: Spontaneous
  Country: TH (occurrence: TH)
  Receive Date: 20240819
  Receipt Date: 20240819
  Transmission Date: 20241017
  Serious: Yes (Other)
  Sender: MERCK
  Company Number: TH-009507513-2408THA005872

PATIENT
  Age: 75 Year
  Sex: Male

DRUGS (3)
  1. KEYTRUDA [Suspect]
     Active Substance: PEMBROLIZUMAB
     Indication: Non-small cell lung cancer
     Dosage: NOW ON PEMETREXED/PEMBROLIZUMAB MAINTENANCE (32 CYCLES)
  2. CARBOPLATIN [Concomitant]
     Active Substance: CARBOPLATIN
     Indication: Non-small cell lung cancer
  3. PEMETREXED [Concomitant]
     Active Substance: PEMETREXED
     Indication: Non-small cell lung cancer
     Dosage: NOW ON PEMETREXED/PEMBROLIZUMAB MAINTENANCE (32 CYCLES)

REACTIONS (4)
  - Neutropenia [Recovering/Resolving]
  - Hypothyroidism [Unknown]
  - Adrenal insufficiency [Unknown]
  - Rash [Unknown]
